FAERS Safety Report 9458378 (Version 1)
Quarter: 2013Q3

REPORT INFORMATION
  Report Type: Spontaneous
  Country: JP (occurrence: JP)
  Receive Date: 20130814
  Receipt Date: 20130814
  Transmission Date: 20140515
  Serious: Yes (Death, Other)
  Sender: FDA-Public Use
  Company Number: JP-SANOFI-AVENTIS-2013SA080598

PATIENT
  Age: 29 Year
  Sex: Female

DRUGS (1)
  1. CLOMIFENE CITRATE [Suspect]
     Indication: INFERTILITY
     Route: 065

REACTIONS (5)
  - Meningioma malignant [Fatal]
  - Haematoma [Unknown]
  - Nausea [Unknown]
  - Headache [Unknown]
  - Brain oedema [Unknown]
